FAERS Safety Report 6392253-8 (Version None)
Quarter: 2009Q4

REPORT INFORMATION
  Report Type: 
  Country: None (occurrence: None)
  Receive Date: 20091007
  Receipt Date: 20091006
  Transmission Date: 20100525
  Serious: Yes (Other)
  Sender: FDA-Public Use
  Company Number: US-B.I. PHARMACEUTICALS,INC./RIDGEFIELD-2009-BP-09091BP

PATIENT
  Age: 83 Year
  Sex: Male
  Weight: 60.78 kg

DRUGS (3)
  1. SPIRIVA [Suspect]
     Route: 055
  2. CALCIUM CHANNEL BLOCKER [Concomitant]
  3. STATINS [Concomitant]

REACTIONS (4)
  - CHEST DISCOMFORT [None]
  - DRY MOUTH [None]
  - FEELING ABNORMAL [None]
  - PARAESTHESIA [None]
